FAERS Safety Report 6818101-7 (Version None)
Quarter: 2010Q3

REPORT INFORMATION
  Report Type: 
  Country: None (occurrence: None)
  Receive Date: 20100706
  Receipt Date: 20100621
  Transmission Date: 20110219
  Serious: Yes (Hospitalization)
  Sender: FDA-Public Use
  Company Number: US-ELI_LILLY_AND_COMPANY-US201006006128

PATIENT
  Sex: Male
  Weight: 142 kg

DRUGS (2)
  1. PRASUGREL HYDROCHLORIDE [Suspect]
     Indication: PERCUTANEOUS CORONARY INTERVENTION
     Dates: start: 20100509, end: 20100510
  2. CLOPIDOGREL [Concomitant]
     Dosage: UNK, UNK
     Dates: start: 20100510

REACTIONS (1)
  - HOSPITALISATION [None]
